FAERS Safety Report 7467906-0 (Version None)
Quarter: 2011Q2

REPORT INFORMATION
  Report Type: 
  Country: None (occurrence: None)
  Receive Date: 20110509
  Receipt Date: 20110128
  Transmission Date: 20111010
  Serious: No
  Sender: FDA-Public Use
  Company Number: US-ALEXION-A201100136

PATIENT
  Sex: Female

DRUGS (5)
  1. FOLIC ACID [Concomitant]
     Dosage: UNK
     Route: 048
  2. SOLIRIS [Suspect]
     Dosage: 900 MG, Q2W
     Route: 042
     Dates: start: 20090701
  3. POTASSIUM [Concomitant]
     Dosage: UNK
     Route: 048
  4. SOLIRIS [Suspect]
     Indication: PAROXYSMAL NOCTURNAL HAEMOGLOBINURIA
     Dosage: 600 MG, QW
     Route: 042
     Dates: start: 20090603, end: 20090601
  5. PREDNISONE [Concomitant]
     Dosage: UNK
     Route: 048

REACTIONS (6)
  - FATIGUE [None]
  - DYSPHAGIA [None]
  - PAIN [None]
  - NECK PAIN [None]
  - BACK PAIN [None]
  - ABDOMINAL PAIN UPPER [None]
